FAERS Safety Report 9311004 (Version 1)
Quarter: 2013Q2

REPORT INFORMATION
  Report Type: Spontaneous
  Country: ES (occurrence: ES)
  Receive Date: 20130528
  Receipt Date: 20130528
  Transmission Date: 20140414
  Serious: Yes (Life-Threatening)
  Sender: FDA-Public Use
  Company Number: ES-ROCHE-1174606

PATIENT
  Age: 74 Year
  Sex: Female

DRUGS (3)
  1. AVASTIN [Suspect]
     Indication: MACULAR DEGENERATION
     Route: 031
     Dates: start: 20110315, end: 20110315
  2. AVASTIN [Interacting]
     Indication: OFF LABEL USE
     Route: 031
     Dates: start: 20110503, end: 20110503
  3. LUCENTIS [Interacting]
     Indication: MACULAR DEGENERATION
     Route: 031
     Dates: start: 20110205, end: 20110205

REACTIONS (2)
  - Acute myocardial infarction [Unknown]
  - Drug interaction [Unknown]
